FAERS Safety Report 5797300-X (Version None)
Quarter: 2008Q2

REPORT INFORMATION
  Report Type: 
  Country: None (occurrence: None)
  Receive Date: 20080627
  Receipt Date: 20080617
  Transmission Date: 20081010
  Serious: Yes (Hospitalization)
  Sender: FDA-Public Use
  Company Number: 2008-179382-NL

PATIENT
  Age: 40 Year
  Sex: Male

DRUGS (2)
  1. NANDROLONE DECANOATE [Suspect]
     Indication: KINESITHERAPY
     Dosage: 2 ML WEEKLY INTRAMUSCULAR
     Route: 030
     Dates: start: 20030101, end: 20080428
  2. SUSTANON [Suspect]
     Indication: KINESITHERAPY
     Dosage: 1 ML BW INTRAMUSCULAR
     Route: 030
     Dates: start: 20030101, end: 20080401

REACTIONS (5)
  - ACUTE CORONARY SYNDROME [None]
  - ECG SIGNS OF MYOCARDIAL ISCHAEMIA [None]
  - LEFT VENTRICULAR HYPERTROPHY [None]
  - LOSS OF CONSCIOUSNESS [None]
  - MALAISE [None]
